FAERS Safety Report 19929537 (Version 2)
Quarter: 2021Q4

REPORT INFORMATION
  Report Type: Spontaneous
  Country: US (occurrence: US)
  Receive Date: 20211007
  Receipt Date: 20211028
  Transmission Date: 20220303
  Serious: Yes (Other)
  Sender: FDA-Public Use
  Company Number: US-UNITED THERAPEUTICS-UNT-2021-017193

PATIENT
  Sex: Female
  Weight: 96.6 kg

DRUGS (7)
  1. REMODULIN [Suspect]
     Active Substance: TREPROSTINIL
     Indication: Pulmonary arterial hypertension
     Dosage: UNK, CONTINUING
     Route: 058
     Dates: start: 20210520
  2. REMODULIN [Suspect]
     Active Substance: TREPROSTINIL
     Dosage: 0.050 ?G/KG, CONTINUING
     Route: 058
     Dates: start: 2021
  3. OPSUMIT [Concomitant]
     Active Substance: MACITENTAN
     Indication: Pulmonary arterial hypertension
     Dosage: 10 MG, QD
     Route: 048
  4. OPSUMIT [Concomitant]
     Active Substance: MACITENTAN
     Dosage: 10 MG, QD
     Route: 048
  5. ALYQ [Concomitant]
     Active Substance: TADALAFIL
     Indication: Product used for unknown indication
     Dosage: UNK
     Route: 065
  6. DILTIAZEM [Concomitant]
     Active Substance: DILTIAZEM
     Indication: Product used for unknown indication
     Dosage: UNK
     Route: 065
  7. ADCIRCA [Concomitant]
     Active Substance: TADALAFIL
     Indication: Pulmonary arterial hypertension
     Dosage: UNK
     Route: 065

REACTIONS (9)
  - Device dislocation [Recovered/Resolved]
  - Infusion site pain [Unknown]
  - Infusion site erythema [Unknown]
  - Infusion site swelling [Unknown]
  - Infusion site haemorrhage [Unknown]
  - Infusion site discharge [Unknown]
  - Purulent discharge [Unknown]
  - Dyspnoea [Unknown]
  - Depression [Unknown]

NARRATIVE: CASE EVENT DATE: 20210101
